FAERS Safety Report 15255661 (Version 3)
Quarter: 2018Q3

REPORT INFORMATION
  Report Type: Report from Study
  Country: None (occurrence: DK)
  Receive Date: 20180808
  Receipt Date: 20180906
  Transmission Date: 20181010
  Serious: Yes (Hospitalization, Other)
  Sender: FDA-Public Use
  Company Number: DK-BAUSCH-BL-2017-028737

PATIENT
  Age: 59 Year
  Sex: Male

DRUGS (2)
  1. XIFAXAN [Suspect]
     Active Substance: RIFAXIMIN
     Indication: HEPATIC ENCEPHALOPATHY
     Route: 048
     Dates: start: 20170727, end: 20171222
  2. CIPROFLOXACIN. [Concomitant]
     Active Substance: CIPROFLOXACIN
     Indication: PROPHYLAXIS
     Route: 048
     Dates: start: 20170728, end: 20180103

REACTIONS (16)
  - Bladder spasm [Recovered/Resolved]
  - Scar pain [Recovered/Resolved]
  - Sepsis [Recovered/Resolved]
  - Skin infection [Unknown]
  - Catheter placement [Unknown]
  - Ascites [Unknown]
  - Perineal pain [Recovered/Resolved]
  - Coagulopathy [Recovered/Resolved]
  - Pleural effusion [Unknown]
  - Skin disorder [Recovered/Resolved]
  - Haematuria [Recovered/Resolved]
  - Withdrawal syndrome [Recovered/Resolved]
  - Gravitational oedema [Recovered/Resolved]
  - Wound drainage [Recovered/Resolved]
  - Renal failure [Recovered/Resolved]
  - Pain of skin [Unknown]

NARRATIVE: CASE EVENT DATE: 20170825
